FAERS Safety Report 10726705 (Version 1)
Quarter: 2015Q1

REPORT INFORMATION
  Report Type: Report from Study
  Country: US (occurrence: US)
  Receive Date: 20150121
  Receipt Date: 20150121
  Transmission Date: 20150721
  Serious: Yes (Other)
  Sender: FDA-Public Use
  Company Number: US-AMGEN INC.-USASL2015004060

PATIENT
  Age: 64 Year
  Sex: Male
  Weight: 111.11 kg

DRUGS (1)
  1. ENBREL [Suspect]
     Active Substance: ETANERCEPT
     Indication: RHEUMATOID ARTHRITIS
     Dosage: 50 MG, QWK
     Route: 058

REACTIONS (10)
  - Lower respiratory tract infection [Unknown]
  - Pain in extremity [Unknown]
  - Injection site pain [Unknown]
  - Sinusitis [Unknown]
  - Hypoacusis [Unknown]
  - Rash macular [Unknown]
  - Micturition urgency [Unknown]
  - Dyspnoea [Unknown]
  - Nasopharyngitis [Unknown]
  - Hepatic enzyme increased [Unknown]

NARRATIVE: CASE EVENT DATE: 2014
